FAERS Safety Report 4388077-3 (Version None)
Quarter: 2004Q2

REPORT INFORMATION
  Report Type: 
  Country: None (occurrence: None)
  Receive Date: 20040629
  Receipt Date: 20040629
  Transmission Date: 20050107
  Serious: Yes (Other)
  Sender: FDA-Public Use
  Company Number: None

PATIENT
  Age: 28 Year
  Sex: Female
  Weight: 72.5755 kg

DRUGS (2)
  1. ZOLOFT [Suspect]
     Indication: DEPRESSION
     Dosage: 100MG ONCE A DAY
     Dates: start: 20040210, end: 20040628
  2. LEXAPRO [Suspect]
     Indication: DEPRESSION
     Dosage: 15MG ONCE A DAY
     Dates: start: 20031020, end: 20040209

REACTIONS (1)
  - ALOPECIA [None]
